FAERS Safety Report 6355590-9 (Version None)
Quarter: 2009Q3

REPORT INFORMATION
  Report Type: 
  Country: None (occurrence: None)
  Receive Date: 20090910
  Receipt Date: 20090824
  Transmission Date: 20100115
  Serious: Yes (Other)
  Sender: FDA-Public Use
  Company Number: B0591323A

PATIENT
  Age: 60 Year
  Sex: Male
  Weight: 108.6818 kg

DRUGS (6)
  1. ACYCLOVIR [Suspect]
     Indication: ENCEPHALITIS HERPES
     Dosage: 1 GRAM(S) / THREE TIMES PER DAY / INTRA
     Route: 042
  2. MOXIFLOXACIN HC1 [Concomitant]
  3. DOXYCYCLINE [Concomitant]
  4. SODIUM CHLORIDE [Concomitant]
  5. FLUTICASONE+SALMETEROL [Concomitant]
  6. TIOTROPIUM [Concomitant]

REACTIONS (2)
  - NEPHROPATHY TOXIC [None]
  - RENAL FAILURE ACUTE [None]
